FAERS Safety Report 7315375-3 (Version None)
Quarter: 2011Q1

REPORT INFORMATION
  Report Type: 
  Country: None (occurrence: None)
  Receive Date: 20110225
  Receipt Date: 20110218
  Transmission Date: 20110831
  Serious: Yes (Hospitalization)
  Sender: FDA-Public Use
  Company Number: US-SANOFI-AVENTIS-2011SA011388

PATIENT
  Age: 51 Year
  Sex: Male

DRUGS (4)
  1. NOVOLOG [Concomitant]
     Dates: start: 20110201
  2. LANTUS [Suspect]
     Indication: TYPE 2 DIABETES MELLITUS
     Dosage: DOSE:20 UNIT(S)
     Route: 058
     Dates: start: 20110201
  3. SOLOSTAR [Suspect]
     Dates: start: 20110201
  4. GLYBURIDE [Suspect]
     Indication: TYPE 2 DIABETES MELLITUS
     Route: 065

REACTIONS (2)
  - BRONCHITIS [None]
  - BLOOD GLUCOSE INCREASED [None]
